FAERS Safety Report 20993073 (Version 1)
Quarter: 2022Q2

REPORT INFORMATION
  Report Type: Spontaneous
  Country: US (occurrence: None)
  Receive Date: 20220622
  Receipt Date: 20220622
  Transmission Date: 20220721
  Serious: Yes (Hospitalization)
  Sender: FDA-Public Use
  Company Number: None

PATIENT
  Age: 14 Year
  Sex: Female
  Weight: 50.2 kg

DRUGS (6)
  1. DAUNORUBICIN [Suspect]
     Active Substance: DAUNORUBICIN
     Indication: Product used for unknown indication
     Dates: end: 20220613
  2. PREDNISOLONE [Suspect]
     Active Substance: PREDNISOLONE
     Dates: end: 20220615
  3. CYTARABINE [Suspect]
     Active Substance: CYTARABINE
     Dates: end: 20220527
  4. METHOTREXATE [Suspect]
     Active Substance: METHOTREXATE
     Dates: end: 20220606
  5. ONCASPAR [Suspect]
     Active Substance: PEGASPARGASE
     Dates: end: 20220601
  6. VINCRISTINE SULFATE [Suspect]
     Active Substance: VINCRISTINE SULFATE
     Dates: end: 20220613

REACTIONS (26)
  - Human rhinovirus test positive [None]
  - Rhinovirus infection [None]
  - Sepsis [None]
  - Pneumonia bacterial [None]
  - Pleural effusion [None]
  - Enterovirus infection [None]
  - Pyrexia [None]
  - Chest X-ray abnormal [None]
  - Blood lactic acid increased [None]
  - Blood pressure decreased [None]
  - Coagulopathy [None]
  - Prothrombin time prolonged [None]
  - Red blood cell transfusion [None]
  - Activated partial thromboplastin time prolonged [None]
  - Blood fibrinogen decreased [None]
  - Atelectasis [None]
  - Lung consolidation [None]
  - Oropharyngeal pain [None]
  - Nausea [None]
  - Bilirubin conjugated increased [None]
  - Constipation [None]
  - Back pain [None]
  - Chest pain [None]
  - Neutrophil count decreased [None]
  - International normalised ratio increased [None]
  - Sinus tachycardia [None]

NARRATIVE: CASE EVENT DATE: 20220614
